FAERS Safety Report 4911483-2 (Version None)
Quarter: 2006Q1

REPORT INFORMATION
  Report Type: 
  Country: None (occurrence: None)
  Receive Date: 20060214
  Receipt Date: 20050315
  Transmission Date: 20060701
  Serious: Yes (Hospitalization, Other)
  Sender: FDA-Public Use
  Company Number: US-MERCK-0503USA03297

PATIENT
  Age: 81 Year
  Sex: Female
  Weight: 68 kg

DRUGS (5)
  1. VIOXX [Suspect]
     Indication: ARTHRITIS
     Route: 048
     Dates: start: 20011017, end: 20040713
  2. FOSAMAX [Concomitant]
     Route: 048
  3. ATENOLOL [Concomitant]
     Route: 065
  4. CALCIUM (UNSPECIFIED) AND VITAMIN D (UNSPECIFIED) [Concomitant]
     Route: 065
  5. [THERAPY UNSPECIFIED] [Concomitant]
     Route: 065

REACTIONS (9)
  - CARDIAC FAILURE [None]
  - CEREBROVASCULAR ACCIDENT [None]
  - CHEST PAIN [None]
  - HEPATOCELLULAR DAMAGE [None]
  - INJURY [None]
  - MYOCARDIAL INFARCTION [None]
  - RENAL INJURY [None]
  - THROMBOSIS [None]
  - ULCER [None]
